FAERS Safety Report 15325752 (Version 5)
Quarter: 2020Q1

REPORT INFORMATION
  Report Type: Report from Study
  Country: BR (occurrence: BR)
  Receive Date: 20180828
  Receipt Date: 20200305
  Transmission Date: 20200409
  Serious: Yes (Other)
  Sender: FDA-Public Use
  Company Number: BR-SA-2018SA230169

PATIENT
  Age: 47 Year
  Sex: Female
  Weight: 48 kg

DRUGS (4)
  1. MAREVAN [Concomitant]
     Active Substance: WARFARIN SODIUM
     Route: 065
  2. LARONIDASE [Suspect]
     Active Substance: LARONIDASE
     Dosage: 20 DF (VIALS); QOW
     Route: 041
     Dates: start: 20091020
  3. LARONIDASE [Suspect]
     Active Substance: LARONIDASE
     Dosage: UNK, QOW
     Route: 041
     Dates: start: 20161020
  4. LARONIDASE [Suspect]
     Active Substance: LARONIDASE
     Indication: MUCOPOLYSACCHARIDOSIS
     Dosage: 20 DF (VIALS); QOW
     Route: 041
     Dates: start: 20161010

REACTIONS (16)
  - Abdominal pain [Recovering/Resolving]
  - Haematemesis [Recovered/Resolved]
  - Renal disorder [Recovered/Resolved]
  - Influenza [Recovering/Resolving]
  - Eating disorder [Recovering/Resolving]
  - Malaise [Recovering/Resolving]
  - Abdominal pain upper [Unknown]
  - Back pain [Unknown]
  - Depression [Unknown]
  - Asthenia [Recovering/Resolving]
  - Dizziness [Recovering/Resolving]
  - Renal pain [Recovering/Resolving]
  - Discomfort [Unknown]
  - Abdominal pain [Unknown]
  - Glaucoma [Unknown]
  - Pruritus [Recovered/Resolved]

NARRATIVE: CASE EVENT DATE: 20180724
